FAERS Safety Report 20306337 (Version 1)
Quarter: 2022Q1

REPORT INFORMATION
  Report Type: Spontaneous
  Country: US (occurrence: None)
  Receive Date: 20220106
  Receipt Date: 20220106
  Transmission Date: 20220423
  Serious: Yes (Hospitalization)
  Sender: FDA-Public Use
  Company Number: None

PATIENT
  Age: 58 Year
  Sex: Female
  Weight: 49.5 kg

DRUGS (14)
  1. IOPAMIDOL [Suspect]
     Active Substance: IOPAMIDOL
     Indication: X-ray with contrast
     Dosage: OTHER FREQUENCY : ONCE;?
     Route: 040
     Dates: start: 20211118, end: 20211118
  2. Potassium Chloride 60 mEq in NSS 500 mL IVPB [Concomitant]
     Dates: start: 20211118, end: 20211118
  3. Prochlorperazine 10 mg/2 mL injection 10 mg IVPB [Concomitant]
     Dates: start: 20211118, end: 20211118
  4. acetaminophen 975 mg tablet [Concomitant]
     Dates: start: 20211118, end: 20211118
  5. cefepime 2 gram in NSS 50 mL IVPB [Concomitant]
     Dates: start: 20211118, end: 20211118
  6. magnesium sulfate 2 gram in SWFI 50 mL IVPB [Concomitant]
     Dates: start: 20211118, end: 20211118
  7. hydrocortisone injection 50 mg IV [Concomitant]
     Dates: start: 20211118, end: 20211118
  8. vancomycin 1 gram in NSS 250 mL IVPB [Concomitant]
     Dates: start: 20211118, end: 20211118
  9. fentanyl 100 mcg/2 mL 50 mcg injection [Concomitant]
     Dates: start: 20211118, end: 20211118
  10. etomidate 2 mg/mL injection 16 mg IV [Concomitant]
     Dates: start: 20211118, end: 20211118
  11. methylprednisolone 125 mg IV [Concomitant]
     Dates: start: 20211118, end: 20211118
  12. Epinephrine 1 mg/mL injection 0.3 mg [Concomitant]
     Dates: start: 20211118, end: 20211118
  13. Propofol 1000 mg in 100 mL IVPB [Concomitant]
     Dates: start: 20211118, end: 20211118
  14. succinylcholine 100 mg/5 mL 80 mg injection [Concomitant]
     Dates: start: 20211118, end: 20211118

REACTIONS (4)
  - Unresponsive to stimuli [None]
  - Skin discolouration [None]
  - Discomfort [None]
  - Adverse drug reaction [None]

NARRATIVE: CASE EVENT DATE: 20211118
